FAERS Safety Report 5754957-7 (Version None)
Quarter: 2008Q2

REPORT INFORMATION
  Report Type: 
  Country: None (occurrence: None)
  Receive Date: 20080528
  Receipt Date: 20080528
  Transmission Date: 20081010
  Serious: No
  Sender: FDA-Public Use
  Company Number: None

PATIENT
  Age: 58 Year
  Sex: Male
  Weight: 80 kg

DRUGS (1)
  1. THALIDOMIDE [Suspect]
     Indication: PROSTATE CANCER
     Dosage: 200 MG QPM ORAL
     Route: 048
     Dates: start: 20080321, end: 20080526

REACTIONS (4)
  - ARTHRALGIA [None]
  - DYSSTASIA [None]
  - FALL [None]
  - JOINT STIFFNESS [None]
